FAERS Safety Report 25926554 (Version 1)
Quarter: 2025Q4

REPORT INFORMATION
  Report Type: Spontaneous
  Country: US (occurrence: None)
  Receive Date: 20251014
  Receipt Date: 20251014
  Transmission Date: 20260117
  Serious: Yes (Hospitalization)
  Sender: FDA-CTU
  Company Number: None

PATIENT
  Age: 65 Year
  Sex: Female
  Weight: 61.23 kg

DRUGS (1)
  1. KEYTRUDA [Suspect]
     Active Substance: PEMBROLIZUMAB
     Indication: Renal cancer
     Dates: start: 20250715, end: 20250812

REACTIONS (4)
  - Type 1 diabetes mellitus [None]
  - Diabetic ketoacidosis [None]
  - Blood potassium increased [None]
  - Blood sodium increased [None]

NARRATIVE: CASE EVENT DATE: 20250813
